FAERS Safety Report 4354383-1 (Version None)
Quarter: 2004Q2

REPORT INFORMATION
  Report Type: 
  Country: None (occurrence: None)
  Receive Date: 20040503
  Receipt Date: 20040420
  Transmission Date: 20050107
  Serious: Yes (Death, Other)
  Sender: FDA-Public Use
  Company Number: 2004028111

PATIENT

DRUGS (3)
  1. PHENYTOIN [Suspect]
     Indication: ILL-DEFINED DISORDER
  2. ZANTAC [Suspect]
     Indication: ILL-DEFINED DISORDER
  3. THERAPEUTICS RADIOPHARMACEUTICALS (THERAPEUTIC RADIOPHARMACEUTICALS) [Suspect]
     Indication: METASTASES TO CENTRAL NERVOUS SYSTEM

REACTIONS (5)
  - DRUG INEFFECTIVE [None]
  - DRUG INTERACTION POTENTIATION [None]
  - HAEMATOTOXICITY [None]
  - NEUTROPENIA [None]
  - PNEUMONIA [None]
